FAERS Safety Report 10766942 (Version 1)
Quarter: 2015Q1

REPORT INFORMATION
  Report Type: Spontaneous
  Country: CH (occurrence: CH)
  Receive Date: 20150205
  Receipt Date: 20150205
  Transmission Date: 20150721
  Serious: Yes (Hospitalization)
  Sender: FDA-Public Use
  Company Number: CH-GE HEALTHCARE MEDICAL DIAGNOSTICS-OMPQ-PR-1501S-0068

PATIENT
  Age: 83 Year
  Sex: Female
  Weight: 72.7 kg

DRUGS (9)
  1. ACCUPAQUE [Suspect]
     Active Substance: IOHEXOL
     Indication: DIAGNOSTIC PROCEDURE
  2. CIPROFLOXACIN HYDROCHLORIDE. [Suspect]
     Active Substance: CIPROFLOXACIN HYDROCHLORIDE
     Indication: URINARY TRACT INFECTION
     Route: 048
     Dates: start: 20141204, end: 20141204
  3. ZALDIAR [Concomitant]
     Active Substance: ACETAMINOPHEN\TRAMADOL HYDROCHLORIDE
     Indication: BONE PAIN
     Route: 048
     Dates: start: 201410, end: 20141204
  4. COVERSUM N [Concomitant]
     Active Substance: PERINDOPRIL
     Indication: ESSENTIAL HYPERTENSION
     Route: 048
  5. BELOC [Concomitant]
     Active Substance: METOPROLOL TARTRATE
     Indication: ESSENTIAL HYPERTENSION
     Route: 048
  6. ACCUPAQUE [Suspect]
     Active Substance: IOHEXOL
     Indication: BONE PAIN
     Route: 042
     Dates: start: 20141204, end: 20141204
  7. TRAMAL [Suspect]
     Active Substance: TRAMADOL
     Indication: BONE PAIN
     Route: 048
     Dates: start: 20141204, end: 20141208
  8. TORASEMIDE [Concomitant]
     Active Substance: TORSEMIDE
     Indication: ESSENTIAL HYPERTENSION
     Route: 048
  9. SINTROM [Concomitant]
     Active Substance: ACENOCOUMAROL
     Indication: ATRIAL FIBRILLATION
     Route: 048

REACTIONS (1)
  - Petechiae [Recovered/Resolved]

NARRATIVE: CASE EVENT DATE: 20141207
